FAERS Safety Report 4448985-1 (Version None)
Quarter: 2004Q3

REPORT INFORMATION
  Report Type: 
  Country: None (occurrence: None)
  Receive Date: 20040910
  Receipt Date: 20040827
  Transmission Date: 20050211
  Serious: Yes (Death)
  Sender: FDA-Public Use
  Company Number: 2004AP03952

PATIENT
  Age: 77 Year
  Sex: Male

DRUGS (10)
  1. ZOLADEX [Suspect]
     Indication: PROSTATE CANCER
     Dosage: 3.6 MG Q4WK SQ
     Route: 058
     Dates: start: 20000913
  2. ZOLADEX [Suspect]
     Indication: PROSTATE CANCER
     Dosage: 10.8 MG Q3MO SQ
     Route: 058
     Dates: start: 20020812, end: 20040709
  3. PROPYLTHIOURACIL [Suspect]
     Indication: HYPERTHYROIDISM
     Dosage: 50 MG DAILY PO
     Route: 048
     Dates: end: 20040721
  4. CASODEX [Concomitant]
  5. ESTRACYT [Concomitant]
  6. PROSEXOL [Concomitant]
  7. DECADRON [Concomitant]
  8. HUSTAZOL [Concomitant]
  9. MUCOSALVAN [Concomitant]
  10. PROPYLTHIOURACIL [Concomitant]

REACTIONS (8)
  - ANURIA [None]
  - BLOOD BETA-D-GLUCAN INCREASED [None]
  - INTERSTITIAL LUNG DISEASE [None]
  - LOSS OF CONSCIOUSNESS [None]
  - MALIGNANT NEOPLASM PROGRESSION [None]
  - OPPORTUNISTIC INFECTION [None]
  - PNEUMOCYSTIS CARINII PNEUMONIA [None]
  - PROSTATE CANCER [None]
